FAERS Safety Report 17690644 (Version 4)
Quarter: 2025Q2

REPORT INFORMATION
  Report Type: Spontaneous
  Country: IT (occurrence: IT)
  Receive Date: 20200421
  Receipt Date: 20250624
  Transmission Date: 20250717
  Serious: Yes (Hospitalization, Other)
  Sender: AUROBINDO
  Company Number: IT-TEVA-2020-IT-1222761

PATIENT
  Age: 13 Day
  Sex: Female

DRUGS (7)
  1. FLUCONAZOLE [Suspect]
     Active Substance: FLUCONAZOLE
     Indication: Candida infection
     Dosage: 6 MILLIGRAM/KILOGRAM, EVERY OTHER DAY
     Route: 065
  2. FLUCONAZOLE [Suspect]
     Active Substance: FLUCONAZOLE
     Indication: Fungal infection
  3. GENTAMICIN [Suspect]
     Active Substance: GENTAMICIN
     Indication: Antibiotic therapy
     Route: 065
  4. RANITIDINE [Suspect]
     Active Substance: RANITIDINE
     Indication: Product used for unknown indication
     Route: 065
  5. AMPICILLIN [Suspect]
     Active Substance: AMPICILLIN
     Indication: Antibiotic therapy
     Route: 065
  6. AMPHOTERICIN B [Suspect]
     Active Substance: AMPHOTERICIN B
     Indication: Candida infection
     Dosage: 3 MILLIGRAM/KILOGRAM, ONCE A DAY (INITIAL DOSE UNKNOWN, LATER INCREASED TO 3 MG/KG/DAY)
     Route: 065
  7. CASPOFUNGIN [Concomitant]
     Active Substance: CASPOFUNGIN
     Indication: Candida infection
     Dosage: 1 MILLIGRAM/KILOGRAM, ONCE A DAY
     Route: 065

REACTIONS (5)
  - Sepsis [Recovered/Resolved]
  - Liver abscess [Recovered/Resolved]
  - Intestinal obstruction [Unknown]
  - Candida infection [Recovered/Resolved]
  - Drug ineffective [Unknown]
